FAERS Safety Report 7230218 (Version 8)
Quarter: 2013Q2

REPORT INFORMATION
  Report Type: Report from Study
  Country: DE (occurrence: DE)
  Receive Date: 20091224
  Receipt Date: 20130627
  Transmission Date: 20140414
  Serious: Yes (Hospitalization)
  Sender: FDA-Public Use
  Company Number: DE-MILLENNIUM PHARMACEUTICALS, INC.-2009-05150

PATIENT
  Sex: 0

DRUGS (7)
  1. VELCADE [Suspect]
     Indication: PLASMA CELL MYELOMA
     Dosage: 2.6 MG, UNK
     Route: 040
     Dates: start: 20090928, end: 20091029
  2. FORTECORTIN [Suspect]
     Indication: PLASMA CELL MYELOMA
     Dosage: 20 MG, UNK
     Route: 048
     Dates: start: 20090928, end: 20091030
  3. GRANISETRON [Concomitant]
     Indication: PROPHYLAXIS OF NAUSEA AND VOMITING
     Dosage: 1 MG, UNK
     Route: 041
     Dates: start: 20090928
  4. RANITIDIN [Concomitant]
     Indication: PROPHYLAXIS OF NAUSEA AND VOMITING
     Dosage: 300 MG, UNK
     Route: 048
     Dates: start: 20090928
  5. RANITIDIN [Concomitant]
     Indication: PROPHYLAXIS
  6. CEFPODOXIME [Concomitant]
     Indication: DIVERTICULITIS
     Dosage: 100 MG, BID
     Route: 048
     Dates: start: 20091014, end: 20091019
  7. CIPROFLOXACIN [Concomitant]
     Indication: DIVERTICULITIS
     Dosage: 500 MG, BID
     Route: 048
     Dates: start: 20091014, end: 20091019

REACTIONS (1)
  - Diverticulitis [Recovered/Resolved]
